FAERS Safety Report 4823945-7 (Version None)
Quarter: 2005Q4

REPORT INFORMATION
  Report Type: 
  Country: None (occurrence: None)
  Receive Date: 20051109
  Receipt Date: 20051102
  Transmission Date: 20060501
  Serious: Yes (Hospitalization)
  Sender: FDA-Public Use
  Company Number: US-JNJFOC-20050800235

PATIENT
  Sex: Male
  Weight: 81.65 kg

DRUGS (4)
  1. HALOPERIDOL DECANOATE [Suspect]
     Route: 030
     Dates: start: 20030101
  2. HALOPERIDOL DECANOATE [Suspect]
     Indication: SCHIZOPHRENIA
     Route: 030
     Dates: start: 20030101
  3. HALOPERIDOL DECANOATE [Suspect]
     Route: 030
     Dates: start: 20030101
  4. HALOPERIDOL DECANOATE [Suspect]
     Indication: DISTURBANCE IN SOCIAL BEHAVIOUR
     Route: 030
     Dates: start: 20030101

REACTIONS (2)
  - INTENTIONAL SELF-INJURY [None]
  - SELF MUTILATION [None]
